FAERS Safety Report 10594756 (Version 3)
Quarter: 2015Q4

REPORT INFORMATION
  Report Type: Spontaneous
  Country: US (occurrence: US)
  Receive Date: 20141120
  Receipt Date: 20151215
  Transmission Date: 20160304
  Serious: No
  Sender: FDA-Public Use
  Company Number: US-AMGEN-USASP2014088630

PATIENT
  Age: 72 Year
  Sex: Male

DRUGS (2)
  1. XELJANZ [Concomitant]
     Active Substance: TOFACITINIB CITRATE
     Indication: RHEUMATOID ARTHRITIS
     Dosage: 5 MG, BID
     Route: 048
     Dates: start: 20140922, end: 20150915
  2. ENBREL [Suspect]
     Active Substance: ETANERCEPT
     Indication: RHEUMATOID ARTHRITIS
     Dosage: UNK
     Route: 065

REACTIONS (2)
  - Drug hypersensitivity [Unknown]
  - Rash [Recovered/Resolved]

NARRATIVE: CASE EVENT DATE: 20150915
